FAERS Safety Report 9198481 (Version 1)
Quarter: 2013Q1

REPORT INFORMATION
  Report Type: Spontaneous
  Country: US (occurrence: None)
  Receive Date: 20120709
  Receipt Date: 20120709
  Transmission Date: 20140127
  Serious: Yes (Disabling, Other)
  Sender: FDA-Public Use
  Company Number: PHHY2011US59479

PATIENT
  Age: 71 Year
  Sex: Female
  Weight: 68 kg

DRUGS (9)
  1. GLEEVEC [Suspect]
     Indication: GASTROINTESTINAL STROMAL TUMOUR
     Route: 048
     Dates: start: 20110525, end: 20110826
  2. IRON (IRON) [Concomitant]
  3. CALCIUM (CALCIUM) [Concomitant]
  4. VITAMIN D (ERGOCALCIFEROL) [Concomitant]
  5. TRAZODONE (TRAZODONE) [Concomitant]
  6. POTASSIUM (POTASSIUM) [Concomitant]
  7. METOPROLOL (METROPROLOL) [Concomitant]
  8. LEVOTHYROXINE (LEVOTHYROXINE) [Concomitant]
  9. AMLODIPINE (AMLODIPINE) [Concomitant]

REACTIONS (8)
  - Rash pruritic [None]
  - Muscle spasms [None]
  - Oedema peripheral [None]
  - Dysgeusia [None]
  - Nausea [None]
  - Rash macular [None]
  - Diarrhoea [None]
  - Fatigue [None]
